FAERS Safety Report 7153830-X (Version None)
Quarter: 2010Q4

REPORT INFORMATION
  Report Type: 
  Country: None (occurrence: None)
  Receive Date: 20101213
  Receipt Date: 20101029
  Transmission Date: 20110411
  Serious: No
  Sender: FDA-Public Use
  Company Number: US-ABBOTT-10P-163-0682718-00

PATIENT
  Sex: Female
  Weight: 98.064 kg

DRUGS (12)
  1. MERIDIA [Suspect]
     Indication: WEIGHT DECREASED
     Dates: start: 20100801, end: 20100901
  2. GLUCOPHAGE [Suspect]
     Indication: BLOOD GLUCOSE INCREASED
     Dates: end: 20100901
  3. MICARDIS [Concomitant]
     Indication: HYPERTENSION
  4. NEXIUM [Concomitant]
     Indication: DYSPEPSIA
  5. FOSAMAX [Concomitant]
     Indication: BONE DISORDER
  6. CELEBREX [Concomitant]
     Indication: PAIN
  7. ORETEC [Concomitant]
     Indication: FLUID RETENTION
  8. CRANBERRY PILLS [Concomitant]
     Indication: SUPPLEMENTATION THERAPY
  9. FISH OIL [Concomitant]
     Indication: SUPPLEMENTATION THERAPY
  10. CALCIUM [Concomitant]
     Indication: MINERAL SUPPLEMENTATION
  11. DEXTROL [Concomitant]
     Indication: URINARY INCONTINENCE
  12. JENUVIA [Concomitant]
     Indication: BLOOD GLUCOSE INCREASED

REACTIONS (5)
  - ASTHENIA [None]
  - COLONIC POLYP [None]
  - DIARRHOEA [None]
  - FEELING ABNORMAL [None]
  - NAUSEA [None]
